FAERS Safety Report 22087479 (Version 4)
Quarter: 2023Q4

REPORT INFORMATION
  Report Type: Report from Study
  Country: US (occurrence: US)
  Receive Date: 20230313
  Receipt Date: 20231117
  Transmission Date: 20240110
  Serious: Yes (Life-Threatening, Hospitalization, Other)
  Sender: FDA-Public Use
  Company Number: US-ACADIA PHARMACEUTICALS INC.-ACA-2023-PIM-000868

PATIENT
  Sex: Male

DRUGS (3)
  1. NUPLAZID [Suspect]
     Active Substance: PIMAVANSERIN TARTRATE
     Indication: Parkinson^s disease psychosis
     Dosage: 34 MILLIGRAM, QD
     Route: 048
     Dates: start: 20230105
  2. NUPLAZID [Suspect]
     Active Substance: PIMAVANSERIN TARTRATE
     Indication: Parkinson^s disease
     Dosage: 34 MILLIGRAM, QD
     Route: 048
     Dates: start: 202303
  3. NUPLAZID [Suspect]
     Active Substance: PIMAVANSERIN TARTRATE
     Indication: Parkinson^s disease psychosis
     Dosage: 10 MILLIGRAM, BID
     Route: 048
     Dates: start: 20231111

REACTIONS (13)
  - Seizure [Unknown]
  - Balance disorder [Unknown]
  - Blood pressure increased [Unknown]
  - Hallucination [Unknown]
  - Fall [Unknown]
  - Hallucination, visual [Unknown]
  - Confusional state [Unknown]
  - Inappropriate schedule of product administration [Not Recovered/Not Resolved]
  - Adverse drug reaction [Unknown]
  - Nonspecific reaction [Unknown]
  - Fall [Unknown]
  - Hallucination [Unknown]
  - Hallucination [Unknown]
